FAERS Safety Report 24992319 (Version 3)
Quarter: 2025Q1

REPORT INFORMATION
  Report Type: Spontaneous
  Country: PT (occurrence: PT)
  Receive Date: 20250220
  Receipt Date: 20250226
  Transmission Date: 20250408
  Serious: Yes (Other)
  Sender: SANDOZ
  Company Number: PT-UCBSA-2020031144

PATIENT
  Age: 74 Year
  Sex: Male

DRUGS (13)
  1. NEUPRO [Suspect]
     Active Substance: ROTIGOTINE
     Indication: On and off phenomenon
     Route: 062
  2. NEUPRO [Suspect]
     Active Substance: ROTIGOTINE
     Route: 065
  3. ONGENTYS [Suspect]
     Active Substance: OPICAPONE
     Indication: On and off phenomenon
     Route: 065
  4. RIVASTIGMINE [Suspect]
     Active Substance: RIVASTIGMINE
     Indication: On and off phenomenon
     Route: 065
  5. RIVASTIGMINE [Suspect]
     Active Substance: RIVASTIGMINE
     Route: 065
  6. ROTIGOTINE [Suspect]
     Active Substance: ROTIGOTINE
     Indication: On and off phenomenon
     Route: 062
  7. ROTIGOTINE [Suspect]
     Active Substance: ROTIGOTINE
     Indication: Off label use
  8. SINEMET [Suspect]
     Active Substance: CARBIDOPA\LEVODOPA
     Indication: On and off phenomenon
     Route: 065
  9. SINEMET [Suspect]
     Active Substance: CARBIDOPA\LEVODOPA
     Route: 065
  10. XADAGO [Suspect]
     Active Substance: SAFINAMIDE MESYLATE
     Indication: On and off phenomenon
     Route: 065
  11. XADAGO [Suspect]
     Active Substance: SAFINAMIDE MESYLATE
     Route: 065
  12. XADAGO [Suspect]
     Active Substance: SAFINAMIDE MESYLATE
     Route: 065
  13. XADAGO [Suspect]
     Active Substance: SAFINAMIDE MESYLATE
     Route: 065

REACTIONS (14)
  - Reduced facial expression [Unknown]
  - Dementia [Unknown]
  - Freezing phenomenon [Unknown]
  - Tremor [Unknown]
  - Hallucination [Unknown]
  - Anxiety [Unknown]
  - Bradykinesia [Unknown]
  - Delusion [Unknown]
  - Gait disturbance [Unknown]
  - Anosmia [Unknown]
  - Constipation [Unknown]
  - Dysphonia [Unknown]
  - Therapeutic response shortened [Unknown]
  - Off label use [Unknown]
